FAERS Safety Report 25607455 (Version 1)
Quarter: 2025Q3

REPORT INFORMATION
  Report Type: Spontaneous
  Country: EU (occurrence: EU)
  Receive Date: 20250725
  Receipt Date: 20250725
  Transmission Date: 20251021
  Serious: Yes (Life-Threatening, Hospitalization, Other)
  Sender: TAKEDA
  Company Number: EU-TAKEDA-2025TUS066360

PATIENT
  Age: 54 Year
  Sex: Male
  Weight: 76 kg

DRUGS (4)
  1. BRINTELLIX [Suspect]
     Active Substance: VORTIOXETINE HYDROBROMIDE
     Indication: Depression
     Dates: start: 20191112, end: 20191210
  2. OFATUMUMAB [Suspect]
     Active Substance: OFATUMUMAB
     Indication: Multiple sclerosis relapse
     Dosage: 1 DOSAGE FORM, 1/WEEK
     Dates: start: 20190623
  3. OFATUMUMAB [Suspect]
     Active Substance: OFATUMUMAB
     Dosage: 20 MILLIGRAM, Q4WEEKS
     Dates: start: 20190617
  4. VITAMIN D3 [Concomitant]
     Active Substance: CHOLECALCIFEROL

REACTIONS (1)
  - Status epilepticus [Recovered/Resolved]

NARRATIVE: CASE EVENT DATE: 20191210
